FAERS Safety Report 5985911-8 (Version None)
Quarter: 2008Q4

REPORT INFORMATION
  Report Type: 
  Country: None (occurrence: None)
  Receive Date: 20081208
  Receipt Date: 20081208
  Transmission Date: 20090506
  Serious: No
  Sender: FDA-Public Use
  Company Number: None

PATIENT
  Age: 52 Year
  Sex: Female
  Weight: 88.4514 kg

DRUGS (1)
  1. CYMBALTA [Suspect]
     Indication: DEPRESSION
     Dosage: 30 MG AT BEDTIME PO
     Route: 048
     Dates: start: 20070601, end: 20081205

REACTIONS (4)
  - INJURY [None]
  - TENDON DISORDER [None]
  - TENDON INJURY [None]
  - TENDONITIS [None]
